FAERS Safety Report 9858540 (Version 1)
Quarter: 2014Q1

REPORT INFORMATION
  Report Type: Spontaneous
  Country: US (occurrence: US)
  Receive Date: 20140131
  Receipt Date: 20140131
  Transmission Date: 20141002
  Serious: No
  Sender: FDA-Public Use
  Company Number: US-009507513-1401USA009510

PATIENT
  Sex: Female

DRUGS (3)
  1. COPPERTONE ULTRAGUARD LOTION SPF-15 [Suspect]
     Indication: PRODUCT USED FOR UNKNOWN INDICATION
     Dosage: UNK, UNKNOWN
     Route: 061
  2. COPPERTONE ULTRAGUARD LOTION SPF-15 [Suspect]
     Dosage: UNK
     Route: 061
  3. COPPERTONE ULTRAGUARD LOTION SPF-15 [Suspect]
     Dosage: UNK

REACTIONS (2)
  - Expired drug administered [Unknown]
  - Circumstance or information capable of leading to medication error [Unknown]
